FAERS Safety Report 10628475 (Version 1)
Quarter: 2014Q4

REPORT INFORMATION
  Report Type: Spontaneous
  Country: US (occurrence: US)
  Receive Date: 20141205
  Receipt Date: 20141205
  Transmission Date: 20150529
  Serious: No
  Sender: FDA-Public Use
  Company Number: US-BRISTOL-MYERS SQUIBB COMPANY-21239231

PATIENT
  Age: 87 Year
  Sex: Male

DRUGS (4)
  1. COUMADIN [Suspect]
     Active Substance: WARFARIN SODIUM
     Indication: HEART VALVE REPLACEMENT
     Dosage: INTERRUPTED: 22JUL2014
     Route: 048
     Dates: start: 2014
  2. LIPITOR [Suspect]
     Active Substance: ATORVASTATIN CALCIUM
     Dosage: INTERRUPTED: 22JUL2014
  3. CARVEDILOL. [Suspect]
     Active Substance: CARVEDILOL
     Dosage: 1DF = 3.125 UNITS NOS.?INTERRUPTED: 22JUL2014
  4. ASPIRIN. [Concomitant]
     Active Substance: ASPIRIN

REACTIONS (1)
  - Drug dose omission [Unknown]

NARRATIVE: CASE EVENT DATE: 20140722
